FAERS Safety Report 17883818 (Version 1)
Quarter: 2020Q2

REPORT INFORMATION
  Report Type: Spontaneous
  Country: US (occurrence: US)
  Receive Date: 20200609
  Receipt Date: 20200609
  Transmission Date: 20200714
  Serious: Yes (Hospitalization)
  Sender: FDA-Public Use
  Company Number: None

PATIENT
  Age: 38 Year
  Sex: Female

DRUGS (28)
  1. SERTRALINE [Concomitant]
     Active Substance: SERTRALINE HYDROCHLORIDE
  2. A-HYDROCORT [Concomitant]
     Active Substance: HYDROCORTISONE SODIUM SUCCINATE
  3. ALPRAZOLAM. [Concomitant]
     Active Substance: ALPRAZOLAM
  4. PREDNISONE. [Concomitant]
     Active Substance: PREDNISONE
  5. CETIRIZINE [Concomitant]
     Active Substance: CETIRIZINE HYDROCHLORIDE
  6. DOXYCYCL HYC [Concomitant]
  7. PROAIR HFA [Concomitant]
     Active Substance: ALBUTEROL SULFATE
  8. PRAZOSIN HCL [Concomitant]
     Active Substance: PRAZOSIN HYDROCHLORIDE
  9. PREGABALIN. [Concomitant]
     Active Substance: PREGABALIN
  10. KETOCONAZOLE. [Concomitant]
     Active Substance: KETOCONAZOLE
  11. VENTOLIN HFA AER [Concomitant]
  12. CIOLOPIROX [Concomitant]
  13. AZITHROMYCIN ANHYDROUS. [Concomitant]
     Active Substance: AZITHROMYCIN ANHYDROUS
  14. BENZONATATE. [Concomitant]
     Active Substance: BENZONATATE
  15. BROM/PSE/DM [Concomitant]
  16. MYCOPHENOLATE 250MG [Suspect]
     Active Substance: MYCOPHENOLIC ACID
     Indication: PRODUCT USED FOR UNKNOWN INDICATION
     Route: 048
     Dates: start: 201511
  17. BUPROPION. [Concomitant]
     Active Substance: BUPROPION
  18. OSELTAMIVIR [Concomitant]
     Active Substance: OSELTAMIVIR
  19. CEFDINIR. [Concomitant]
     Active Substance: CEFDINIR
  20. CEFUROXIME. [Concomitant]
     Active Substance: CEFUROXIME
  21. DULOXETINE. [Concomitant]
     Active Substance: DULOXETINE
  22. METHYIPRED [Concomitant]
  23. BUPROPN HCL [Concomitant]
     Active Substance: BUPROPION HYDROCHLORIDE
  24. CYCLOBENZAPR [Concomitant]
     Active Substance: CYCLOBENZAPRINE
  25. MIRTAZAPINE. [Concomitant]
     Active Substance: MIRTAZAPINE
  26. FLUOCINONIDE. [Concomitant]
     Active Substance: FLUOCINONIDE
  27. MUPIROCIN. [Concomitant]
     Active Substance: MUPIROCIN
  28. NYSTATIN. [Concomitant]
     Active Substance: NYSTATIN

REACTIONS (2)
  - COVID-19 [None]
  - Pulmonary mass [None]

NARRATIVE: CASE EVENT DATE: 20200322
